FAERS Safety Report 13626993 (Version 1)
Quarter: 2017Q2

REPORT INFORMATION
  Report Type: Spontaneous
  Country: US (occurrence: US)
  Receive Date: 20170607
  Receipt Date: 20170607
  Transmission Date: 20170830
  Serious: Yes (Disabling)
  Sender: FDA-Public Use
  Company Number: None

PATIENT
  Age: 38 Year
  Sex: Female
  Weight: 56.25 kg

DRUGS (7)
  1. VITAMIN D3 [Concomitant]
     Active Substance: CHOLECALCIFEROL
  2. CIPROFLOXACIN. [Suspect]
     Active Substance: CIPROFLOXACIN
     Indication: BRONCHITIS
     Dosage: ?          QUANTITY:10 TABLET(S);?TWICE A DAY ORAL
     Route: 048
     Dates: start: 20170518, end: 20170520
  3. NASACORT [Concomitant]
     Active Substance: TRIAMCINOLONE ACETONIDE
  4. CIPROFLOXACIN. [Suspect]
     Active Substance: CIPROFLOXACIN
     Indication: SINUSITIS
     Dosage: ?          QUANTITY:10 TABLET(S);?TWICE A DAY ORAL
     Route: 048
     Dates: start: 20170518, end: 20170520
  5. OMEGA 3 FATTY ACIDS [Concomitant]
     Active Substance: OMEGA-3 FATTY ACIDS
  6. MAGNESIUM ION SOLUTION [Concomitant]
  7. PROBIOTIC [Concomitant]
     Active Substance: PROBIOTICS NOS

REACTIONS (13)
  - Panic attack [None]
  - Rash [None]
  - Insomnia [None]
  - Muscular weakness [None]
  - Tendon disorder [None]
  - Dysstasia [None]
  - Paraesthesia [None]
  - Paranoia [None]
  - Thinking abnormal [None]
  - Fatigue [None]
  - Palpitations [None]
  - Headache [None]
  - Hypoaesthesia [None]

NARRATIVE: CASE EVENT DATE: 20170520
